FAERS Safety Report 20187493 (Version 3)
Quarter: 2021Q4

REPORT INFORMATION
  Report Type: Report from Study
  Country: US (occurrence: US)
  Receive Date: 20211215
  Receipt Date: 20211223
  Transmission Date: 20220303
  Serious: No
  Sender: FDA-Public Use
  Company Number: US-NOVARTISTESTPH-NVSC2021US287420

PATIENT
  Age: 27 Year
  Sex: Male

DRUGS (2)
  1. KESIMPTA [Suspect]
     Active Substance: OFATUMUMAB
     Indication: Relapsing multiple sclerosis
     Dosage: UNK, QMO
     Route: 058
     Dates: start: 202107
  2. GILENYA [Suspect]
     Active Substance: FINGOLIMOD HYDROCHLORIDE
     Indication: Relapsing multiple sclerosis
     Dosage: UNK
     Route: 048
     Dates: start: 201403, end: 201503

REACTIONS (9)
  - White matter lesion [Unknown]
  - Mobility decreased [Unknown]
  - Hiccups [Recovered/Resolved]
  - Energy increased [Unknown]
  - Euphoric mood [Unknown]
  - Balance disorder [Unknown]
  - Product dose omission issue [Recovered/Resolved]
  - Injection site pain [Unknown]
  - Drug ineffective [Recovered/Resolved]

NARRATIVE: CASE EVENT DATE: 20140301
